FAERS Safety Report 6612058-X (Version None)
Quarter: 2010Q1

REPORT INFORMATION
  Report Type: 
  Country: None (occurrence: None)
  Receive Date: 20100303
  Receipt Date: 20100223
  Transmission Date: 20100710
  Serious: Yes (Hospitalization)
  Sender: FDA-Public Use
  Company Number: B0631694A

PATIENT
  Sex: Female
  Weight: 34 kg

DRUGS (9)
  1. ARIXTRA [Suspect]
     Indication: DRUG USE FOR UNKNOWN INDICATION
     Dosage: 2.5MG PER DAY
     Route: 058
     Dates: start: 20091217, end: 20091228
  2. CHINESE MEDICINE [Concomitant]
     Dosage: 6U PER DAY
     Route: 048
  3. CHINESE MEDICINE [Concomitant]
     Route: 048
  4. MAGNESIUM OXIDE [Concomitant]
     Dosage: 1.5G PER DAY
     Route: 048
  5. FERROMIA [Concomitant]
     Route: 048
  6. CEPHARANTHIN [Concomitant]
     Dosage: 6MG PER DAY
     Route: 048
  7. PURSENNID [Concomitant]
     Dosage: 24MG PER DAY
     Route: 048
     Dates: start: 20091127
  8. PACLITAXEL [Concomitant]
  9. CARBOPLATIN [Concomitant]

REACTIONS (6)
  - HAEMATOCRIT DECREASED [None]
  - HAEMOGLOBIN DECREASED [None]
  - HAEMORRHAGE SUBCUTANEOUS [None]
  - PLATELET COUNT DECREASED [None]
  - POST PROCEDURAL HAEMORRHAGE [None]
  - WHITE BLOOD CELL COUNT DECREASED [None]
